FAERS Safety Report 5797834-8 (Version None)
Quarter: 2008Q3

REPORT INFORMATION
  Report Type: 
  Country: None (occurrence: None)
  Receive Date: 20080702
  Receipt Date: 20080623
  Transmission Date: 20090109
  Serious: Yes (Other)
  Sender: FDA-Public Use
  Company Number: BR-JNJFOC-20080605543

PATIENT
  Age: 78 Year
  Sex: Female
  Weight: 75 kg

DRUGS (3)
  1. ACETAMINOPHEN W/ CODEINE [Suspect]
     Route: 048
  2. ACETAMINOPHEN W/ CODEINE [Suspect]
     Indication: POST HERPETIC NEURALGIA
     Dosage: ACETAMINOPHEN 500MG/CODEINE PHOSPHATE 30MG. 1 TABLET
     Route: 048
  3. DIPYRONE [Concomitant]
     Indication: PAIN
     Route: 048

REACTIONS (2)
  - AGGRESSION [None]
  - DEPRESSION [None]
